FAERS Safety Report 5525244-7 (Version None)
Quarter: 2007Q4

REPORT INFORMATION
  Report Type: 
  Country: None (occurrence: None)
  Receive Date: 20071126
  Receipt Date: 20071121
  Transmission Date: 20080405
  Serious: Yes (Hospitalization)
  Sender: FDA-Public Use
  Company Number: FR-BRISTOL-MYERS SQUIBB COMPANY-13981410

PATIENT
  Age: 82 Year
  Sex: Male

DRUGS (7)
  1. COAPROVEL FILM-COATED TABS 300/12.5 MG [Suspect]
     Dates: end: 20070904
  2. BREXIN [Suspect]
  3. AERIUS [Suspect]
     Dosage: AFTER DISCHARGE DOSE REDUCED TO 1G
  4. PARACETAMOL [Concomitant]
  5. STILNOX [Concomitant]
  6. TRIFLUCAN [Concomitant]
  7. FAZOL [Concomitant]

REACTIONS (3)
  - BACK PAIN [None]
  - FALL [None]
  - HYPONATRAEMIA [None]
